FAERS Safety Report 7965372-X (Version None)
Quarter: 2011Q4

REPORT INFORMATION
  Report Type: 
  Country: None (occurrence: None)
  Receive Date: 20111208
  Receipt Date: 20111129
  Transmission Date: 20120403
  Serious: Yes (Other)
  Sender: FDA-Public Use
  Company Number: US-BAYER-201031878NA

PATIENT
  Age: 34 Year
  Sex: Female
  Weight: 105.67 kg

DRUGS (9)
  1. CEFDINIR [Concomitant]
     Dosage: UNK
     Dates: start: 20060811, end: 20060821
  2. LEXAPRO [Concomitant]
     Indication: ANXIETY
     Dosage: 10 MG, UNK
     Route: 048
     Dates: start: 20060101, end: 20070101
  3. LEXAPRO [Concomitant]
     Indication: DEPRESSION
  4. CLARINEX [Concomitant]
     Dosage: 5 MG, UNK
     Route: 048
  5. YASMIN [Suspect]
     Indication: AMENORRHOEA
  6. ALDACTONE [Concomitant]
     Indication: BLOOD CHOLESTEROL INCREASED
     Dosage: UNK
     Dates: start: 20050101
  7. OMNICEF [Concomitant]
     Dosage: UNK
     Route: 048
     Dates: start: 20060811, end: 20060821
  8. YASMIN [Suspect]
     Indication: POLYCYSTIC OVARIES
  9. YASMIN [Suspect]
     Indication: CONTRACEPTION
     Dosage: UNK UNK, UNK
     Route: 065
     Dates: start: 20030101, end: 20060901

REACTIONS (3)
  - DEPRESSION [None]
  - ANXIETY [None]
  - DEEP VEIN THROMBOSIS [None]
